FAERS Safety Report 6016957-1 (Version None)
Quarter: 2008Q4

REPORT INFORMATION
  Report Type: 
  Country: None (occurrence: None)
  Receive Date: 20081219
  Receipt Date: 20081204
  Transmission Date: 20090506
  Serious: Yes (Hospitalization)
  Sender: FDA-Public Use
  Company Number: KV200800946

PATIENT
  Age: 53 Year
  Sex: Female
  Weight: 71.7 kg

DRUGS (2)
  1. MORPHINE SULFATE [Suspect]
     Indication: BACK PAIN
     Dosage: 30 MG, BID, ORAL
     Route: 048
     Dates: start: 20080801, end: 20080901
  2. KLONOPIN [Concomitant]

REACTIONS (3)
  - CHEST PAIN [None]
  - DYSPNOEA [None]
  - PRODUCT QUALITY ISSUE [None]
